FAERS Safety Report 20299408 (Version 2)
Quarter: 2022Q1

REPORT INFORMATION
  Report Type: Spontaneous
  Country: US (occurrence: US)
  Receive Date: 20220105
  Receipt Date: 20220124
  Transmission Date: 20220424
  Serious: Yes (Other)
  Sender: FDA-Public Use
  Company Number: US-GW PHARMA-202112USGW06452

PATIENT

DRUGS (5)
  1. EPIDIOLEX [Suspect]
     Active Substance: CANNABIDIOL
     Indication: Lennox-Gastaut syndrome
     Dosage: 14.96 MG/KG/DAY, 190 MILLIGRAM, BID
     Route: 048
     Dates: start: 20210901, end: 2021
  2. EPIDIOLEX [Suspect]
     Active Substance: CANNABIDIOL
     Dosage: 19.69 MG/KG/DAY, 250 MILLIGRAM, BID
     Route: 048
     Dates: start: 2021
  3. KEPPRA [Concomitant]
     Active Substance: LEVETIRACETAM
     Indication: Product used for unknown indication
     Dosage: 12 MILLILITER, BID
     Route: 065
  4. BANZEL [Concomitant]
     Active Substance: RUFINAMIDE
     Indication: Product used for unknown indication
     Dosage: 10 MILLILITER, BID
     Route: 065
  5. ONFI [Concomitant]
     Active Substance: CLOBAZAM
     Indication: Product used for unknown indication
     Dosage: 2.5MH/ML 3 BID
     Route: 065

REACTIONS (2)
  - Change in seizure presentation [Unknown]
  - Seizure [Unknown]

NARRATIVE: CASE EVENT DATE: 20211029
